FAERS Safety Report 7053465-3 (Version None)
Quarter: 2010Q4

REPORT INFORMATION
  Report Type: 
  Country: None (occurrence: None)
  Receive Date: 20101020
  Receipt Date: 20101012
  Transmission Date: 20110411
  Serious: Yes (Hospitalization)
  Sender: FDA-Public Use
  Company Number: JP-BAXTER-2010BH025917

PATIENT
  Age: 66 Year
  Sex: Female

DRUGS (6)
  1. CYCLOPHOSPHAMIDE [Suspect]
     Indication: BREAST CANCER RECURRENT
     Route: 042
     Dates: start: 20100824, end: 20100910
  2. EPIRUBICIN HYDROCHLORIDE [Suspect]
     Indication: BREAST CANCER RECURRENT
     Route: 042
     Dates: start: 20100824, end: 20100910
  3. CIPROFLOXACIN HCL [Suspect]
     Indication: PYREXIA
     Route: 048
     Dates: start: 20100907, end: 20100910
  4. AMLODIPINE [Concomitant]
     Indication: HYPERTENSION
     Route: 048
  5. ACTOS [Concomitant]
     Indication: DIABETES MELLITUS
     Route: 048
  6. LOXONIN [Concomitant]
     Indication: CANCER PAIN
     Route: 048

REACTIONS (1)
  - RENAL FAILURE [None]
